FAERS Safety Report 24784048 (Version 1)
Quarter: 2024Q4

REPORT INFORMATION
  Report Type: Spontaneous
  Country: PL (occurrence: PL)
  Receive Date: 20241227
  Receipt Date: 20241227
  Transmission Date: 20250115
  Serious: Yes (Life-Threatening)
  Sender: TEVA
  Company Number: None

PATIENT
  Age: 37 Year
  Sex: Female

DRUGS (2)
  1. DICLOFENAC [Suspect]
     Active Substance: DICLOFENAC
     Indication: Dermatomyositis
     Dosage: NO DOSAGE DATA AVAILABLE. ACCORDING TO THE PATIENT, SHE TOOK OLFEN IN LARGE DOSE DUE TO THE SEVER...
     Route: 048
  2. PREDNISONE [Suspect]
     Active Substance: PREDNISONE
     Indication: Dermatomyositis
     Route: 048

REACTIONS (1)
  - Gastric ulcer perforation [Unknown]

NARRATIVE: CASE EVENT DATE: 20210317
